FAERS Safety Report 9145774 (Version 2)
Quarter: 2013Q3

REPORT INFORMATION
  Report Type: Report from Study
  Country: US (occurrence: US)
  Receive Date: 20130307
  Receipt Date: 20130822
  Transmission Date: 20140515
  Serious: No
  Sender: FDA-Public Use
  Company Number: PHEH2013US005404

PATIENT
  Age: 60 Year
  Sex: Female
  Weight: 60.77 kg

DRUGS (8)
  1. TASIGNA [Suspect]
     Indication: CHRONIC MYELOID LEUKAEMIA
     Dosage: 2 DF, Q12H
     Route: 048
  2. CALTRATE +D [Concomitant]
  3. SINGULAIR [Concomitant]
     Dosage: 10 MG, UNK
     Route: 048
  4. ATENOLOL [Concomitant]
     Dosage: 100 MG, UNK
     Route: 048
  5. OMEPRAZOLE [Concomitant]
     Dosage: 20 MG, UNK
     Route: 048
  6. CITRUCEL [Concomitant]
     Dosage: 500 MG, UNK
     Route: 048
  7. MULTIVITAMINS [Concomitant]
     Route: 048
  8. PROBIOTIC [Concomitant]

REACTIONS (11)
  - Skin disorder [Unknown]
  - Blood glucose increased [Unknown]
  - Blood cholesterol increased [Unknown]
  - Constipation [Unknown]
  - Blood potassium increased [Unknown]
  - Alopecia [Unknown]
  - Rash [Unknown]
  - Folliculitis [Unknown]
  - Nausea [Unknown]
  - Vomiting [Unknown]
  - Dyspepsia [Unknown]
